FAERS Safety Report 5811361-0 (Version None)
Quarter: 2008Q3

REPORT INFORMATION
  Report Type: 
  Country: None (occurrence: None)
  Receive Date: 20080710
  Receipt Date: 20080626
  Transmission Date: 20090109
  Serious: Yes (Hospitalization)
  Sender: FDA-Public Use
  Company Number: 2008001526

PATIENT
  Age: 66 Year
  Sex: Female

DRUGS (11)
  1. ERLOTINIB (ERLOTINIB) (TABLET) (ERLOTINIB) [Suspect]
     Indication: LUNG NEOPLASM MALIGNANT
     Dosage: ORAL
     Route: 048
     Dates: start: 20080416, end: 20080611
  2. LOXONIN (LOXOPROFEN SODIUM) [Concomitant]
  3. SELBEX (TEPRENONE) [Concomitant]
  4. FAMOTIDINE [Concomitant]
  5. LENDORM [Concomitant]
  6. MAGNESIUM OXIDE (MAGNESIUM OXIDE) [Concomitant]
  7. AMLODIPINE BESYLATE [Concomitant]
  8. OXYCODONE HCL [Concomitant]
  9. LIPITOR [Concomitant]
  10. FENTANYL TRANSDERMAL SYSTEM [Concomitant]
  11. FLAVITAN (FLAVINE ADENINE DINUCLEOTIDE) [Concomitant]

REACTIONS (3)
  - DYSPNOEA [None]
  - RASH [None]
  - THROMBOCYTOPENIA [None]
